FAERS Safety Report 10058177 (Version 1)
Quarter: 2014Q2

REPORT INFORMATION
  Report Type: Spontaneous
  Country: US (occurrence: None)
  Receive Date: 20140403
  Receipt Date: 20140403
  Transmission Date: 20141212
  Serious: Yes (Hospitalization)
  Sender: FDA-Public Use
  Company Number: None

PATIENT
  Age: 64 Year
  Sex: Male
  Weight: 72.7 kg

DRUGS (2)
  1. 5-FLUOROURACIL [Suspect]
     Dates: start: 20140324, end: 20140328
  2. GEMCITABINE HYDROCHLORIDE [Suspect]
     Dates: start: 20130923

REACTIONS (4)
  - Chest pain [None]
  - Palpitations [None]
  - Electrolyte imbalance [None]
  - Blood potassium decreased [None]
